FAERS Safety Report 12280175 (Version 1)
Quarter: 2016Q2

REPORT INFORMATION
  Report Type: Spontaneous
  Country: US (occurrence: US)
  Receive Date: 20160419
  Receipt Date: 20160419
  Transmission Date: 20160815
  Serious: No
  Sender: FDA-Public Use
  Company Number: US-009507513-1604USA002517

PATIENT
  Age: 59 Year
  Sex: Male

DRUGS (7)
  1. LOPID [Concomitant]
     Active Substance: GEMFIBROZIL
     Dosage: 1.25 MICROGRAM, QD
  2. PRINIVIL [Concomitant]
     Active Substance: LISINOPRIL
     Dosage: UNK, QD
     Route: 048
  3. JANUVIA [Suspect]
     Active Substance: SITAGLIPTIN PHOSPHATE
     Indication: GLUCOSE TOLERANCE IMPAIRED
     Dosage: 100 MG, QD
     Route: 048
     Dates: start: 201602, end: 20160331
  4. ASPIRIN. [Concomitant]
     Active Substance: ASPIRIN
     Dosage: 81 MG, ONCE
  5. NIACIN. [Concomitant]
     Active Substance: NIACIN
     Dosage: UNK, ONCE A NIGHT
  6. METFORMIN [Concomitant]
     Active Substance: METFORMIN HYDROCHLORIDE
     Dosage: UNK, BID
  7. ZOCOR [Concomitant]
     Active Substance: SIMVASTATIN
     Dosage: UNK, BID
     Route: 048

REACTIONS (2)
  - Muscle spasms [Unknown]
  - Glycosylated haemoglobin increased [Unknown]

NARRATIVE: CASE EVENT DATE: 201603
